FAERS Safety Report 14938269 (Version 4)
Quarter: 2019Q2

REPORT INFORMATION
  Report Type: Spontaneous
  Country: US (occurrence: US)
  Receive Date: 20180525
  Receipt Date: 20190515
  Transmission Date: 20190711
  Serious: Yes (Other)
  Sender: FDA-Public Use
  Company Number: US-ASTRAZENECA-2018SE66589

PATIENT
  Age: 870 Month
  Sex: Female
  Weight: 108.4 kg

DRUGS (34)
  1. NEXIUM [Suspect]
     Active Substance: ESOMEPRAZOLE MAGNESIUM
     Indication: GASTROOESOPHAGEAL REFLUX DISEASE
     Route: 048
     Dates: start: 20030702
  2. PRILOSEC OTC [Suspect]
     Active Substance: OMEPRAZOLE MAGNESIUM
     Indication: GASTROOESOPHAGEAL REFLUX DISEASE
     Route: 048
     Dates: start: 2003, end: 2007
  3. ZOLOFT [Concomitant]
     Active Substance: SERTRALINE HYDROCHLORIDE
     Indication: ANXIETY
     Dates: start: 200112, end: 200703
  4. TYLENOL [Concomitant]
     Active Substance: ACETAMINOPHEN
     Indication: BACK PAIN
     Dates: start: 201804
  5. BUPROPION. [Concomitant]
     Active Substance: BUPROPION
     Dates: start: 20150825
  6. APAP/CODEIN [Concomitant]
     Dates: start: 20151109
  7. MECLIZINE [Concomitant]
     Active Substance: MECLIZINE HYDROCHLORIDE
  8. DORZOLAMIDE [Concomitant]
     Active Substance: DORZOLAMIDE
  9. ZESTRIL/LISINOPRIL [Concomitant]
     Indication: HYPERTENSION
     Dates: start: 200108, end: 200204
  10. ZESTORETIC [Concomitant]
     Active Substance: HYDROCHLOROTHIAZIDE\LISINOPRIL
  11. MOBIC [Concomitant]
     Active Substance: MELOXICAM
  12. LISINOPRIL. [Concomitant]
     Active Substance: LISINOPRIL
  13. NEXIUM [Suspect]
     Active Substance: ESOMEPRAZOLE MAGNESIUM
     Indication: GASTROOESOPHAGEAL REFLUX DISEASE
     Route: 048
     Dates: start: 2003, end: 2007
  14. PRAVASTATIN. [Concomitant]
     Active Substance: PRAVASTATIN
  15. DUONEB [Concomitant]
     Active Substance: ALBUTEROL SULFATE\IPRATROPIUM BROMIDE
  16. BUPROPION. [Concomitant]
     Active Substance: BUPROPION
  17. FAMOTIDINE. [Concomitant]
     Active Substance: FAMOTIDINE
  18. NEXIUM [Suspect]
     Active Substance: ESOMEPRAZOLE MAGNESIUM
     Indication: GASTROOESOPHAGEAL REFLUX DISEASE
     Route: 048
     Dates: start: 200307
  19. LOMOTIL [Concomitant]
     Active Substance: ATROPINE SULFATE\DIPHENOXYLATE HYDROCHLORIDE
  20. TORADOL [Concomitant]
     Active Substance: KETOROLAC TROMETHAMINE
  21. COMBIGAN [Concomitant]
     Active Substance: BRIMONIDINE TARTRATE\TIMOLOL MALEATE
  22. RISPERDAL [Concomitant]
     Active Substance: RISPERIDONE
     Dates: start: 200108, end: 200209
  23. ZYPREXA [Concomitant]
     Active Substance: OLANZAPINE
     Dates: start: 200110, end: 200305
  24. ZANTAC 150 OTC [Concomitant]
     Dates: start: 2011, end: 2017
  25. METOPROLOL. [Concomitant]
     Active Substance: METOPROLOL
  26. OMEPRAZOLE. [Suspect]
     Active Substance: OMEPRAZOLE
     Indication: GASTROOESOPHAGEAL REFLUX DISEASE
     Dosage: GENERIC- 20MG ONCE A DAY
     Route: 065
     Dates: start: 201702
  27. PRILOSEC OTC [Suspect]
     Active Substance: OMEPRAZOLE MAGNESIUM
     Indication: GASTROOESOPHAGEAL REFLUX DISEASE
     Route: 048
     Dates: start: 200602, end: 200706
  28. PRILOSEC OTC [Suspect]
     Active Substance: OMEPRAZOLE MAGNESIUM
     Indication: GASTROOESOPHAGEAL REFLUX DISEASE
     Route: 048
     Dates: start: 20060227
  29. ZESTRIL/LISINOPRIL [Concomitant]
     Indication: HYPERTENSION
     Dates: start: 200210, end: 200703
  30. HALDOL [Concomitant]
     Active Substance: HALOPERIDOL
     Dates: start: 200307, end: 200308
  31. WELLBUTRIN [Concomitant]
     Active Substance: BUPROPION HYDROCHLORIDE
  32. PEPCID [Concomitant]
     Active Substance: FAMOTIDINE
  33. TIZANIDINE. [Concomitant]
     Active Substance: TIZANIDINE
  34. MELOXICAM. [Concomitant]
     Active Substance: MELOXICAM

REACTIONS (3)
  - Renal impairment [Unknown]
  - Acute kidney injury [Unknown]
  - Chronic kidney disease [Not Recovered/Not Resolved]
